FAERS Safety Report 5622707-0 (Version None)
Quarter: 2008Q1

REPORT INFORMATION
  Report Type: 
  Country: None (occurrence: None)
  Receive Date: 20080212
  Receipt Date: 20080131
  Transmission Date: 20080703
  Serious: Yes (Hospitalization)
  Sender: FDA-Public Use
  Company Number: DE-JNJFOC-20080105622

PATIENT
  Age: 24 Year
  Sex: Male
  Weight: 76 kg

DRUGS (3)
  1. ASPIRIN [Suspect]
     Indication: HEADACHE
  2. PARACETAMOL [Concomitant]
     Indication: HEADACHE
     Dosage: ANALGETIC DOSE
  3. ALCOHOL [Concomitant]
     Indication: DRUG USE FOR UNKNOWN INDICATION
     Dosage: LARGE QUANTITIES

REACTIONS (1)
  - GLUCOSE-6-PHOSPHATE DEHYDROGENASE DEFICIENCY [None]
